FAERS Safety Report 6725697-2 (Version None)
Quarter: 2010Q2

REPORT INFORMATION
  Report Type: 
  Country: None (occurrence: None)
  Receive Date: 20100513
  Receipt Date: 20100513
  Transmission Date: 20101027
  Serious: Yes (Death)
  Sender: FDA-Public Use
  Company Number: None

PATIENT
  Age: 28 Year
  Sex: Male
  Weight: 115.6672 kg

DRUGS (4)
  1. ZYPREXA [Suspect]
     Indication: BIPOLAR DISORDER
     Dosage: UNKNOWN START DATE
  2. ZYPREXA [Suspect]
     Indication: PSYCHOTIC DISORDER
     Dosage: UNKNOWN START DATE
  3. ABILIFY [Suspect]
     Indication: BIPOLAR DISORDER
     Dates: start: 20080515, end: 20100326
  4. ABILIFY [Suspect]
     Indication: PSYCHOTIC DISORDER
     Dates: start: 20080515, end: 20100326

REACTIONS (6)
  - BLOOD ISOPROPANOL INCREASED [None]
  - DIABETES MELLITUS [None]
  - HEPATIC STEATOSIS [None]
  - KETOACIDOSIS [None]
  - LETHARGY [None]
  - WEIGHT INCREASED [None]
